FAERS Safety Report 4437488-6 (Version None)
Quarter: 2004Q3

REPORT INFORMATION
  Report Type: 
  Country: None (occurrence: None)
  Receive Date: 20040827
  Receipt Date: 20040819
  Transmission Date: 20050211
  Serious: Yes (Other)
  Sender: FDA-Public Use
  Company Number: HQWYE972918MAR04

PATIENT
  Age: 31 Year
  Sex: Male

DRUGS (3)
  1. PROTIUM (PANTOPRAZOLE, TABLET, DELAYED RELEASE) [Suspect]
     Indication: BACTERIAL INFECTION
     Dosage: 80 MG 1 X PER 1 DAY
     Route: 048
     Dates: start: 20031229, end: 20040105
  2. CLARITHROMYCIN [Suspect]
     Indication: BACTERIAL INFECTION
     Dosage: 100 MG 1 X PER 1 DAY
     Route: 048
     Dates: start: 20031229, end: 20040105
  3. PINAMOX (AMOXICILLIN TRIHYDRATE) [Suspect]
     Indication: BACTERIAL INFECTION
     Dosage: 2 G 1 X PER 1 DAY
     Route: 048
     Dates: start: 20031229, end: 20040105

REACTIONS (2)
  - DEPRESSION [None]
  - SUICIDE ATTEMPT [None]
